FAERS Safety Report 24844701 (Version 2)
Quarter: 2025Q1

REPORT INFORMATION
  Report Type: Other
  Country: US (occurrence: US)
  Receive Date: 20250115
  Receipt Date: 20250116
  Transmission Date: 20250409
  Serious: Yes (Other)
  Sender: TRAVERE THERAPEUTICS
  Company Number: US-TRAVERE-2024TVT01252

PATIENT
  Age: 61 Year
  Sex: Male

DRUGS (3)
  1. FILSPARI [Suspect]
     Active Substance: SPARSENTAN
     Indication: IgA nephropathy
     Route: 048
  2. FILSPARI [Suspect]
     Active Substance: SPARSENTAN
     Route: 048
     Dates: end: 20241211
  3. IRBESARTAN [Suspect]
     Active Substance: IRBESARTAN
     Indication: Product used for unknown indication

REACTIONS (9)
  - Blood pressure increased [None]
  - Contraindicated product administered [Unknown]
  - Illness [Unknown]
  - Abdominal pain [Unknown]
  - Epigastric discomfort [Unknown]
  - Feeding disorder [Unknown]
  - Abdominal distension [Unknown]
  - Dyspepsia [Unknown]
  - Discoloured vomit [Unknown]
